FAERS Safety Report 16106177 (Version 1)
Quarter: 2019Q1

REPORT INFORMATION
  Report Type: Spontaneous
  Country: FR (occurrence: FR)
  Receive Date: 20190322
  Receipt Date: 20190322
  Transmission Date: 20190418
  Serious: Yes (Hospitalization)
  Sender: FDA-Public Use
  Company Number: FR-ELI_LILLY_AND_COMPANY-FR201903008236

PATIENT
  Age: 80 Year
  Sex: Male
  Weight: 90 kg

DRUGS (3)
  1. OXALIPLATINE [Suspect]
     Active Substance: OXALIPLATIN
     Indication: MANTLE CELL LYMPHOMA
     Dosage: 2 G, UNKNOWN
     Route: 042
     Dates: start: 20180426
  2. GEMZAR [Suspect]
     Active Substance: GEMCITABINE HYDROCHLORIDE
     Indication: MANTLE CELL LYMPHOMA
     Dosage: 2 G, UNKNOWN
     Route: 042
     Dates: start: 20180426
  3. RIXATHON [Suspect]
     Active Substance: RITUXIMAB
     Indication: MANTLE CELL LYMPHOMA
     Dosage: 375 MG/M2, UNKNOWN
     Route: 042
     Dates: start: 20180424

REACTIONS (4)
  - General physical health deterioration [Recovered/Resolved]
  - Tumour lysis syndrome [Recovered/Resolved]
  - Off label use [Unknown]
  - Thrombocytopenia [Recovered/Resolved]

NARRATIVE: CASE EVENT DATE: 201804
